FAERS Safety Report 5066014-6 (Version None)
Quarter: 2006Q3

REPORT INFORMATION
  Report Type: 
  Country: None (occurrence: None)
  Receive Date: 20060731
  Receipt Date: 20060731
  Transmission Date: 20061208
  Serious: Yes (Disabling)
  Sender: FDA-Public Use
  Company Number: None

PATIENT
  Age: 44 Year
  Sex: Male
  Weight: 124 kg

DRUGS (1)
  1. FERROUS SULFATE      325 MG       UPSHER-SMITH [Suspect]
     Indication: ANAEMIA
     Dosage: 325 MG      TWICE A DAY   PO
     Route: 048
     Dates: start: 20060620, end: 20060712

REACTIONS (1)
  - CONSTIPATION [None]
